FAERS Safety Report 16756400 (Version 2)
Quarter: 2020Q1

REPORT INFORMATION
  Report Type: Report from Study
  Country: US (occurrence: US)
  Receive Date: 20190829
  Receipt Date: 20200326
  Transmission Date: 20200409
  Serious: Yes (Hospitalization)
  Sender: FDA-Public Use
  Company Number: US-ACTELION-A-NJ2019-193139

PATIENT
  Sex: Female

DRUGS (3)
  1. TRACLEER [Suspect]
     Active Substance: BOSENTAN
     Indication: PULMONARY ARTERIAL HYPERTENSION
     Dosage: 125 MG, BID
     Route: 048
     Dates: start: 20140308
  2. TYVASO [Concomitant]
     Active Substance: TREPROSTINIL
  3. ORENITRAM [Concomitant]
     Active Substance: TREPROSTINIL

REACTIONS (10)
  - Hypokalaemia [Unknown]
  - Decreased appetite [Unknown]
  - Arthralgia [Unknown]
  - Hepatic pain [Unknown]
  - Flushing [Unknown]
  - Abdominal pain upper [Unknown]
  - Acute kidney injury [Unknown]
  - Nausea [Unknown]
  - Chest pain [Unknown]
  - Pleurisy [Unknown]
